FAERS Safety Report 5076626-1 (Version None)
Quarter: 2006Q3

REPORT INFORMATION
  Report Type: 
  Country: None (occurrence: None)
  Receive Date: 20060725
  Receipt Date: 20060124
  Transmission Date: 20061208
  Serious: No
  Sender: FDA-Public Use
  Company Number: 200610477BWH

PATIENT
  Age: 78 Year
  Sex: Male

DRUGS (5)
  1. NEXAVAR [Suspect]
     Indication: RENAL CELL CARCINOMA STAGE UNSPECIFIED
     Dosage: 400 MG, BID, ORAL
     Route: 048
     Dates: start: 20060118, end: 20060123
  2. LASIX [Concomitant]
  3. ALLOPURINOL [Concomitant]
  4. INHALER (NOS) [Concomitant]
  5. EYE DROPS [Concomitant]

REACTIONS (2)
  - GLOSSODYNIA [None]
  - TONGUE DISCOLOURATION [None]
